FAERS Safety Report 12704181 (Version 1)
Quarter: 2016Q3

REPORT INFORMATION
  Report Type: Spontaneous
  Country: JP (occurrence: JP)
  Receive Date: 20160831
  Receipt Date: 20160831
  Transmission Date: 20161109
  Serious: Yes (Other)
  Sender: FDA-Public Use
  Company Number: JP-MYLANLABS-2016M1035581

PATIENT

DRUGS (15)
  1. CYCLOPHOSPHAMIDE. [Suspect]
     Active Substance: CYCLOPHOSPHAMIDE
     Dosage: 6000 ??, ??
     Route: 041
  2. CISPLATIN. [Suspect]
     Active Substance: CISPLATIN
     Indication: EMBRYONAL RHABDOMYOSARCOMA
     Dosage: 400 MG/M2, QD
     Route: 041
     Dates: start: 2008
  3. CISPLATIN. [Suspect]
     Active Substance: CISPLATIN
     Dosage: 100 MG/M2, QD
     Route: 041
  4. CARBOPLATIN. [Suspect]
     Active Substance: CARBOPLATIN
     Indication: EMBRYONAL RHABDOMYOSARCOMA
     Dosage: 300 MG, QD
     Route: 041
     Dates: start: 2008
  5. IFOSFAMIDE. [Suspect]
     Active Substance: IFOSFAMIDE
     Indication: EMBRYONAL RHABDOMYOSARCOMA
     Dosage: 27 ??, ??
     Route: 041
     Dates: start: 2008
  6. TOPOTECAN [Suspect]
     Active Substance: TOPOTECAN\TOPOTECAN HYDROCHLORIDE
     Dosage: 37.5 MG/M2, QD
     Route: 041
  7. CYCLOPHOSPHAMIDE. [Suspect]
     Active Substance: CYCLOPHOSPHAMIDE
     Indication: EMBRYONAL RHABDOMYOSARCOMA
     Dosage: 6000G/M2
     Route: 041
     Dates: start: 2008
  8. PIRARUBICIN [Suspect]
     Active Substance: PIRARUBICIN
     Indication: EMBRYONAL RHABDOMYOSARCOMA
     Dosage: 180 MG/M2, QD
     Route: 041
     Dates: start: 2008
  9. VINCRISTINE SULFATE. [Suspect]
     Active Substance: VINCRISTINE SULFATE
     Dosage: 1.5 MG/M2, QD
     Route: 041
  10. ETOPOSIDE. [Suspect]
     Active Substance: ETOPOSIDE
     Indication: EMBRYONAL RHABDOMYOSARCOMA
     Dosage: 3000 MG/M2, QD
     Route: 041
     Dates: start: 2008
  11. DACTINOMYCIN [Suspect]
     Active Substance: DACTINOMYCIN
     Indication: EMBRYONAL RHABDOMYOSARCOMA
     Dosage: 0.195 MG/M2, QD
     Route: 041
  12. TOPOTECAN [Suspect]
     Active Substance: TOPOTECAN\TOPOTECAN HYDROCHLORIDE
     Indication: EMBRYONAL RHABDOMYOSARCOMA
     Dosage: 25 MG/M2, QD
     Route: 041
     Dates: start: 2008
  13. VINCRISTINE SULFATE. [Suspect]
     Active Substance: VINCRISTINE SULFATE
     Indication: EMBRYONAL RHABDOMYOSARCOMA
     Dosage: 13.5 MG/M2, QD
     Route: 041
     Dates: start: 2008
  14. DACTINOMYCIN [Suspect]
     Active Substance: DACTINOMYCIN
     Dosage: 0.315 MG/M2, QD
     Route: 041
     Dates: start: 2008
  15. IRINOTECAN [Suspect]
     Active Substance: IRINOTECAN
     Indication: EMBRYONAL RHABDOMYOSARCOMA
     Dosage: 1750 MG/M2, QD
     Route: 041
     Dates: start: 2008

REACTIONS (4)
  - Cytomegalovirus infection [Unknown]
  - Hepatic function abnormal [Unknown]
  - Mucous membrane disorder [Unknown]
  - Graft versus host disease [Unknown]
